FAERS Safety Report 18678967 (Version 1)
Quarter: 2020Q4

REPORT INFORMATION
  Report Type: Spontaneous
  Country: ES (occurrence: ES)
  Receive Date: 20201230
  Receipt Date: 20201230
  Transmission Date: 20210114
  Serious: Yes (Other)
  Sender: FDA-Public Use
  Company Number: ES-ALKEM LABORATORIES LIMITED-ES-ALKEM-2020-09083

PATIENT

DRUGS (3)
  1. ROSUVASTATIN. [Suspect]
     Active Substance: ROSUVASTATIN
     Indication: NEOPLASM
     Dosage: 10 MILLIGRAM, ONCE
     Route: 048
  2. DIGOXIN. [Suspect]
     Active Substance: DIGOXIN
     Indication: NEOPLASM
     Dosage: 0.25 MILLIGRAM, ONCE
     Route: 048
  3. CAPMATINIB [Suspect]
     Active Substance: CAPMATINIB
     Indication: NEOPLASM
     Dosage: UNK
     Route: 065

REACTIONS (2)
  - Vomiting [Unknown]
  - Abdominal pain [Unknown]
